FAERS Safety Report 9631322 (Version 1)
Quarter: 2013Q4

REPORT INFORMATION
  Report Type: Spontaneous
  Country: IT (occurrence: None)
  Receive Date: 20131015
  Receipt Date: 20131015
  Transmission Date: 20140711
  Serious: Yes (Other)
  Sender: FDA-Public Use
  Company Number: IT-ALKEM-000181

PATIENT
  Age: 50 Year
  Sex: Male

DRUGS (2)
  1. MYCOPHENOLATE MOFETIL (MYCOPHENOLATE MOFETIL) [Suspect]
     Indication: IMMUNOSUPPRESSANT DRUG THERAPY
  2. TACROLIMUS (TACROLIMUS) [Suspect]
     Indication: IMMUNOSUPPRESSANT DRUG THERAPY

REACTIONS (1)
  - Laryngeal cancer [None]
